FAERS Safety Report 24223582 (Version 2)
Quarter: 2024Q3

REPORT INFORMATION
  Report Type: Spontaneous
  Country: CO (occurrence: CO)
  Receive Date: 20240819
  Receipt Date: 20240903
  Transmission Date: 20241017
  Serious: No
  Sender: MERZ
  Company Number: CO-MRZWEB-2024080000140

PATIENT
  Sex: Female

DRUGS (1)
  1. BOTULINUM TOXIN TYPE A [Suspect]
     Active Substance: BOTULINUM TOXIN TYPE A
     Indication: Skin wrinkling
     Dates: start: 2023, end: 2023

REACTIONS (2)
  - Skin wrinkling [Recovered/Resolved]
  - Facial asymmetry [Recovered/Resolved]

NARRATIVE: CASE EVENT DATE: 20230101
